FAERS Safety Report 7602483-2 (Version None)
Quarter: 2011Q3

REPORT INFORMATION
  Report Type: 
  Country: None (occurrence: None)
  Receive Date: 20110712
  Receipt Date: 20110701
  Transmission Date: 20111222
  Serious: No
  Sender: FDA-Public Use
  Company Number: US-BIOGENIDEC-2011BI024413

PATIENT
  Age: 70 Year
  Sex: Female

DRUGS (1)
  1. AVONEX [Suspect]
     Indication: MULTIPLE SCLEROSIS
     Route: 030
     Dates: start: 20110301

REACTIONS (5)
  - OROPHARYNGEAL PAIN [None]
  - HEARING IMPAIRED [None]
  - PAIN [None]
  - EAR PAIN [None]
  - INFLUENZA LIKE ILLNESS [None]
